FAERS Safety Report 11529092 (Version 2)
Quarter: 2015Q4

REPORT INFORMATION
  Report Type: Spontaneous
  Country: US (occurrence: US)
  Receive Date: 20150921
  Receipt Date: 20151119
  Transmission Date: 20160304
  Serious: Yes (Other)
  Sender: FDA-Public Use
  Company Number: US-TEVA-593795ACC

PATIENT
  Age: 32 Year
  Sex: Female
  Weight: 53.12 kg

DRUGS (2)
  1. PARAGARD T 380A [Suspect]
     Active Substance: COPPER
     Indication: CONTRACEPTION
     Route: 015
  2. MULTIVITAMIN [Concomitant]
     Active Substance: VITAMINS
     Indication: VITAMIN SUPPLEMENTATION

REACTIONS (6)
  - Back pain [Recovered/Resolved]
  - Haemorrhage [Recovered/Resolved]
  - Abdominal pain lower [Recovered/Resolved]
  - Dysmenorrhoea [Recovered/Resolved]
  - Menorrhagia [Not Recovered/Not Resolved]
  - Exposure during breast feeding [Unknown]

NARRATIVE: CASE EVENT DATE: 20150810
